FAERS Safety Report 8829671 (Version 3)
Quarter: 2012Q4

REPORT INFORMATION
  Report Type: 
  Country: US (occurrence: US)
  Receive Date: 20121008
  Receipt Date: 20121102
  Transmission Date: 20130627
  Serious: Yes (Hospitalization, Other)
  Sender: FDA-Public Use
  Company Number: US-PFIZER INC-2012225910

PATIENT
  Age: 79 Year
  Sex: Female
  Weight: 93.42 kg

DRUGS (7)
  1. AXITINIB [Suspect]
     Indication: GLIOBLASTOMA MULTIFORME
     Dosage: 5 mg, 2x/day
     Route: 048
     Dates: start: 20120802, end: 20120829
  2. COREG [Concomitant]
     Indication: CORONARY ARTERY DISEASE
     Dosage: UNK
     Route: 048
  3. LISINOPRIL [Concomitant]
     Indication: HYPERTENSION
     Dosage: UNK
     Route: 048
  4. LASIX [Concomitant]
     Indication: DIURETIC THERAPY
     Dosage: UNK
     Route: 048
  5. LASIX [Concomitant]
     Indication: HYPERTENSION
  6. ASA [Concomitant]
     Indication: CORONARY ARTERY DISEASE
     Dosage: UNK
     Route: 048
  7. KEPPRA [Concomitant]
     Indication: SEIZURES
     Dosage: UNK

REACTIONS (3)
  - Abscess [Recovered/Resolved]
  - Convulsion [Recovered/Resolved]
  - Atrial fibrillation [Recovered/Resolved]
